FAERS Safety Report 16587696 (Version 1)
Quarter: 2019Q3

REPORT INFORMATION
  Report Type: Spontaneous
  Country: FR (occurrence: FR)
  Receive Date: 20190717
  Receipt Date: 20190717
  Transmission Date: 20191004
  Serious: Yes (Hospitalization)
  Sender: FDA-Public Use
  Company Number: FR-GLAXOSMITHKLINE-FR2019124531

PATIENT
  Age: 65 Year
  Sex: Male
  Weight: 70 kg

DRUGS (6)
  1. ZOPHREN [Suspect]
     Active Substance: ONDANSETRON
     Indication: PROPHYLAXIS OF NAUSEA AND VOMITING
     Dosage: CYCLICAL
     Route: 042
     Dates: start: 20190527, end: 20190527
  2. ERBITUX [Suspect]
     Active Substance: CETUXIMAB
     Indication: METASTATIC SQUAMOUS CELL CARCINOMA
     Dosage: CYCLICAL
     Route: 042
     Dates: start: 20190527, end: 20190527
  3. POLARAMINE [Suspect]
     Active Substance: DEXCHLORPHENIRAMINE MALEATE
     Indication: ALLERGY PROPHYLAXIS
     Dosage: CYCLICAL
     Route: 042
     Dates: start: 20190527, end: 20190527
  4. METHYLPREDNISOLONE. [Suspect]
     Active Substance: METHYLPREDNISOLONE
     Indication: ALLERGY PROPHYLAXIS
     Dosage: CYCLICAL
     Route: 042
     Dates: start: 20190527, end: 20190527
  5. AZANTAC [Suspect]
     Active Substance: RANITIDINE HYDROCHLORIDE
     Indication: PROPHYLAXIS OF NAUSEA AND VOMITING
     Dosage: CYCLICAL
     Route: 042
     Dates: start: 20190527, end: 20190527
  6. LEVOTHYROXINE SODIUM. [Concomitant]
     Active Substance: LEVOTHYROXINE SODIUM
     Indication: HYPOTHYROIDISM
     Dosage: 125 ?G, QD
     Route: 048

REACTIONS (3)
  - Rash maculo-papular [Recovered/Resolved]
  - Hypersensitivity [Recovered/Resolved]
  - Pruritus [Recovered/Resolved]

NARRATIVE: CASE EVENT DATE: 20190527
